FAERS Safety Report 7375329-8 (Version None)
Quarter: 2011Q1

REPORT INFORMATION
  Report Type: 
  Country: None (occurrence: None)
  Receive Date: 20110325
  Receipt Date: 20101028
  Transmission Date: 20110831
  Serious: No
  Sender: FDA-Public Use
  Company Number: US-BAYER-201040790NA

PATIENT
  Sex: Female

DRUGS (1)
  1. MIRENA [Suspect]
     Dosage: 20 MCG/24HR, UNK
     Route: 015

REACTIONS (4)
  - AMENORRHOEA [None]
  - MEDICAL DEVICE COMPLICATION [None]
  - WEIGHT INCREASED [None]
  - VAGINAL DISCHARGE [None]
